FAERS Safety Report 9784670 (Version 2)
Quarter: 2014Q1

REPORT INFORMATION
  Report Type: Report from Study
  Country: US (occurrence: US)
  Receive Date: 20131226
  Receipt Date: 20140106
  Transmission Date: 20141002
  Serious: Yes (Hospitalization)
  Sender: FDA-Public Use
  Company Number: US-ACTELION-A-NJ2013-92654

PATIENT
  Age: 77 Year
  Sex: Female

DRUGS (4)
  1. VELETRI [Suspect]
     Indication: PULMONARY ARTERIAL HYPERTENSION
     Dosage: 30 NG/KG, PER MIN
     Route: 042
     Dates: start: 20130220
  2. TRACLEER [Concomitant]
     Indication: PULMONARY ARTERIAL HYPERTENSION
     Dosage: 62.5 MG, BID
     Route: 048
     Dates: start: 20120919, end: 20121018
  3. TRACLEER [Concomitant]
     Dosage: 125 MG, BID
     Route: 048
     Dates: start: 20121019
  4. ADCIRCA [Concomitant]

REACTIONS (1)
  - Pneumonia [Not Recovered/Not Resolved]
